FAERS Safety Report 23723423 (Version 2)
Quarter: 2024Q2

REPORT INFORMATION
  Report Type: Spontaneous
  Country: IR (occurrence: IR)
  Receive Date: 20240409
  Receipt Date: 20240416
  Transmission Date: 20240715
  Serious: Yes (Death, Life-Threatening, Hospitalization, Other)
  Sender: FDA-Public Use
  Company Number: IR-SA-2024SA106946

PATIENT

DRUGS (1)
  1. MYOZYME [Suspect]
     Active Substance: ALGLUCOSIDASE ALFA
     Indication: Glycogen storage disease type II
     Dosage: 20 MG/KG
     Dates: start: 20220601, end: 20240217

REACTIONS (3)
  - Respiratory failure [Fatal]
  - Infection [Unknown]
  - Respiratory distress [Unknown]
